FAERS Safety Report 23943913 (Version 2)
Quarter: 2024Q3

REPORT INFORMATION
  Report Type: Spontaneous
  Country: FR (occurrence: FR)
  Receive Date: 20240606
  Receipt Date: 20240706
  Transmission Date: 20241016
  Serious: Yes (Other)
  Sender: ABBVIE
  Company Number: FR-ABBVIE-5786833

PATIENT
  Age: 81 Year
  Sex: Male

DRUGS (11)
  1. ALPHAGAN P [Suspect]
     Active Substance: BRIMONIDINE TARTRATE
     Indication: Intraocular pressure increased
     Dosage: 1 DROP IN THE MORNING IN BOTH EYES
     Route: 047
     Dates: start: 20191024, end: 202008
  2. DORZOLAMIDE HYDROCHLORIDE\TIMOLOL MALEATE [Concomitant]
     Active Substance: DORZOLAMIDE HYDROCHLORIDE\TIMOLOL MALEATE
     Indication: Intraocular pressure increased
     Dosage: 1 DROP IN BOTH EYES TWICE A DAY
  3. BRIMONIDINE [Suspect]
     Active Substance: BRIMONIDINE TARTRATE
     Indication: Intraocular pressure increased
     Dosage: (MANUFACTURER EG LABORATORY)?FORM STRENGTH: 0.2 PERCENT
     Route: 047
  4. LATANOPROST [Suspect]
     Active Substance: LATANOPROST
     Indication: Intraocular pressure increased
     Dosage: 1 DROP PER DAY IN EVENING IN BOTH EYES, 50 MICROGRAMMES/ML, COLLYRE EN SOLUTION
     Route: 047
     Dates: start: 201911, end: 202008
  5. HYALURONATE SODIUM\TREHALOSE [Suspect]
     Active Substance: HYALURONATE SODIUM\TREHALOSE
     Indication: Dry eye
     Dosage: 1 DROP FOUR TO SIX TIMES PER DAY IN BOTH EYES
     Route: 047
     Dates: start: 201911, end: 202008
  6. XALATAN [Concomitant]
     Active Substance: LATANOPROST
     Indication: Intraocular pressure increased
     Dosage: 1 DROP
     Dates: start: 2016, end: 20171204
  7. XALATAN [Concomitant]
     Active Substance: LATANOPROST
     Indication: Intraocular pressure increased
     Dosage: 1 DROP IN BOTH EYES EVERY EVENING
     Dates: start: 202008
  8. AZOPT [Concomitant]
     Active Substance: BRINZOLAMIDE
     Indication: Intraocular pressure increased
     Dates: start: 20190806, end: 20191024
  9. SYSTANE (HYPROMELLOSE 2910 (4000 MPA.S)) [Concomitant]
     Active Substance: HYPROMELLOSE 2910 (4000 MPA.S)
     Indication: Eye irritation
     Dosage: 3 DROPS 3 TIMES PER DAY
  10. HYDROCORTISONE SODIUM PHOSPHATE [Concomitant]
     Active Substance: HYDROCORTISONE SODIUM PHOSPHATE
     Indication: Dry eye
     Dosage: 1 DROP 3 TIMES/DAY IN BOTH EYES
  11. TRAVATAN [Concomitant]
     Active Substance: TRAVOPROST
     Indication: Product used for unknown indication

REACTIONS (2)
  - Drug ineffective [Unknown]
  - Optic nerve disorder [Unknown]

NARRATIVE: CASE EVENT DATE: 20190101
